FAERS Safety Report 5147343-4 (Version None)
Quarter: 2006Q4

REPORT INFORMATION
  Report Type: 
  Country: None (occurrence: None)
  Receive Date: 20061103
  Receipt Date: 20061024
  Transmission Date: 20070319
  Serious: Yes (Hospitalization, Disabling)
  Sender: FDA-Public Use
  Company Number: 2006-01575

PATIENT
  Age: 62 Year
  Sex: Female

DRUGS (17)
  1. VELCADE [Suspect]
     Indication: MULTIPLE MYELOMA
     Dosage: 1.30 MG/M2
     Dates: start: 20060616, end: 20060619
  2. MELPHALAN (MELPHALAN) [Suspect]
     Indication: MULTIPLE MYELOMA
     Dosage: 8.00 MG/M2
     Dates: start: 20060128
  3. ESCITALOPRAM [Concomitant]
  4. SYNTHROID [Concomitant]
  5. DAPSONE [Concomitant]
  6. PREVACID [Concomitant]
  7. CALCIUM [Concomitant]
  8. MS CONTIN [Concomitant]
  9. ZOMETA [Concomitant]
  10. METOPROLOL [Concomitant]
  11. NEURONTIN [Concomitant]
  12. B-12 (CYANOCOBALAMIN-TANNIN COMPLEX) [Concomitant]
  13. MULTIVITAMINS (ERGOCALCIFEROL, PANTHENOL, NICOTINAMIDE, RIBOFLAVIN, TH [Concomitant]
  14. FOLATE (FOLATE SODIUM) [Concomitant]
  15. ROXICODONE [Concomitant]
  16. ARANESP [Concomitant]
  17. MIRALAX [Concomitant]

REACTIONS (22)
  - ASTHENIA [None]
  - ATROPHY [None]
  - BLOOD CHLORIDE ABNORMAL [None]
  - BLOOD CREATININE INCREASED [None]
  - C-REACTIVE PROTEIN INCREASED [None]
  - CONFUSIONAL STATE [None]
  - DRUG TOXICITY [None]
  - ELECTROENCEPHALOGRAM ABNORMAL [None]
  - ENCEPHALITIS [None]
  - EOSINOPHIL COUNT INCREASED [None]
  - FALL [None]
  - HAEMOGLOBIN DECREASED [None]
  - MENTAL STATUS CHANGES [None]
  - MICROANGIOPATHY [None]
  - MONOCYTE COUNT INCREASED [None]
  - MUSCULAR WEAKNESS [None]
  - NEUROPATHY PERIPHERAL [None]
  - NUCLEAR MAGNETIC RESONANCE IMAGING BRAIN ABNORMAL [None]
  - OXYGEN SATURATION DECREASED [None]
  - PROTEIN URINE PRESENT [None]
  - VIRAL INFECTION [None]
  - WHITE BLOOD CELL COUNT DECREASED [None]
